FAERS Safety Report 11301906 (Version 1)
Quarter: 2015Q3

REPORT INFORMATION
  Report Type: Spontaneous
  Country: US (occurrence: None)
  Receive Date: 20150723
  Receipt Date: 20150723
  Transmission Date: 20151125
  Serious: No
  Sender: FDA-Public Use
  Company Number: None

PATIENT
  Age: 58 Year
  Sex: Female

DRUGS (3)
  1. REBIF [Suspect]
     Active Substance: INTERFERON BETA-1A
     Indication: MULTIPLE SCLEROSIS
  2. INVEGA [Concomitant]
     Active Substance: PALIPERIDONE
  3. AMPYRA [Concomitant]
     Active Substance: DALFAMPRIDINE

REACTIONS (3)
  - Fall [None]
  - Fatigue [None]
  - Depression [None]

NARRATIVE: CASE EVENT DATE: 201507
